FAERS Safety Report 11844938 (Version 2)
Quarter: 2015Q4

REPORT INFORMATION
  Report Type: Spontaneous
  Country: FR (occurrence: FR)
  Receive Date: 20151217
  Receipt Date: 20151222
  Transmission Date: 20160305
  Serious: Yes (Other)
  Sender: FDA-Public Use
  Company Number: FR-UCBSA-2015040429

PATIENT
  Age: 0 Year
  Sex: Male
  Weight: 3 kg

DRUGS (4)
  1. CIMZIA [Suspect]
     Active Substance: CERTOLIZUMAB PEGOL
     Indication: RHEUMATOID ARTHRITIS
     Dosage: UNK
     Route: 064
     Dates: start: 20150208, end: 201502
  2. ATARAX [Concomitant]
     Active Substance: HYDROXYZINE\HYDROXYZINE HYDROCHLORIDE
     Indication: EPIDURAL INJECTION
     Dosage: UNK
     Route: 064
     Dates: start: 20150923, end: 20150923
  3. AMOXICILLINE [Concomitant]
     Active Substance: AMOXICILLIN
     Indication: EPIDURAL INJECTION
     Dosage: UNK
     Route: 064
     Dates: start: 20150923, end: 20150923
  4. SOLU-MEDROL [Suspect]
     Active Substance: METHYLPREDNISOLONE SODIUM SUCCINATE
     Indication: RHEUMATOID ARTHRITIS
     Dosage: UNK
     Route: 064
     Dates: start: 20150626

REACTIONS (4)
  - Hypoglycaemia [Recovered/Resolved]
  - Hypothermia [Recovered/Resolved]
  - Premature baby [Unknown]
  - Foetal exposure during pregnancy [Unknown]

NARRATIVE: CASE EVENT DATE: 20150208
